FAERS Safety Report 15053020 (Version 1)
Quarter: 2018Q2

REPORT INFORMATION
  Report Type: Report from Study
  Country: PH (occurrence: PH)
  Receive Date: 20180622
  Receipt Date: 20180622
  Transmission Date: 20180711
  Serious: Yes (Life-Threatening, Hospitalization, Other)
  Sender: FDA-Public Use
  Company Number: PH-ASTRAZENECA-2016SF13777

PATIENT
  Age: 49 Year
  Sex: Female

DRUGS (14)
  1. OMEPRAZOLE. [Concomitant]
     Active Substance: OMEPRAZOLE
     Indication: HYPERCHLORHYDRIA
     Dosage: 20.00 MG QD
     Route: 048
     Dates: start: 20161015
  2. CALMAG [Concomitant]
     Indication: HYPOCALCAEMIA
     Route: 048
     Dates: start: 20161022
  3. PARACETAMOL [Concomitant]
     Active Substance: ACETAMINOPHEN
     Indication: PREMEDICATION
     Route: 042
     Dates: start: 20161015, end: 20161015
  4. MEDI4736 [Suspect]
     Active Substance: DURVALUMAB
     Indication: SQUAMOUS CELL CARCINOMA OF HEAD AND NECK
     Route: 042
     Dates: start: 20161015, end: 20161015
  5. AMINO ACIDS NOS [Concomitant]
     Active Substance: AMINO ACIDS
     Indication: DECREASED APPETITE
     Route: 048
     Dates: start: 20161015
  6. CALMAG [Concomitant]
     Indication: HYPOMAGNESAEMIA
     Route: 048
     Dates: start: 20161022
  7. DIPHENHYDRAMINE. [Concomitant]
     Active Substance: DIPHENHYDRAMINE
     Indication: PREMEDICATION
     Route: 042
     Dates: start: 20161015, end: 20161015
  8. ALGESIA [Concomitant]
     Indication: FACIAL PAIN
     Dosage: 1162.50 MG
     Route: 048
     Dates: start: 20161015, end: 20161022
  9. CALMAG [Concomitant]
     Indication: HYPOCALCAEMIA
     Route: 048
     Dates: start: 20161015, end: 20161022
  10. FLUCONAZOLE. [Concomitant]
     Active Substance: FLUCONAZOLE
     Indication: MUCOSAL INFECTION
     Route: 048
     Dates: start: 20161023, end: 20161101
  11. FLUCONAZOLE. [Concomitant]
     Active Substance: FLUCONAZOLE
     Indication: MUCOSAL INFECTION
     Route: 048
     Dates: start: 20161022, end: 20161022
  12. CALMAG [Concomitant]
     Indication: HYPOMAGNESAEMIA
     Route: 048
     Dates: start: 20161015, end: 20161022
  13. TRAMADOL. [Concomitant]
     Active Substance: TRAMADOL
     Indication: FACIAL PAIN
     Dosage: 200 MG EVERY 12 HOURS
     Route: 048
     Dates: start: 20161022
  14. STUDY PROCEDURE [Suspect]
     Active Substance: INVESTIGATIONAL PRODUCT
     Indication: SQUAMOUS CELL CARCINOMA OF HEAD AND NECK
     Route: 065

REACTIONS (3)
  - Dyspnoea [Recovered/Resolved]
  - Mucosal infection [Recovered/Resolved]
  - Face oedema [Recovering/Resolving]

NARRATIVE: CASE EVENT DATE: 20161022
